FAERS Safety Report 20193986 (Version 1)
Quarter: 2021Q4

REPORT INFORMATION
  Report Type: Spontaneous
  Country: TH (occurrence: TH)
  Receive Date: 20211216
  Receipt Date: 20211216
  Transmission Date: 20220303
  Serious: Yes (Hospitalization, Other)
  Sender: FDA-Public Use
  Company Number: TH-ALVOGEN-2021-ALVOGEN-117931

PATIENT
  Age: 20 Year
  Sex: Female

DRUGS (5)
  1. BUPROPION [Suspect]
     Active Substance: BUPROPION
     Indication: Major depression
  2. ESCITALOPRAM [Suspect]
     Active Substance: ESCITALOPRAM OXALATE
     Indication: Major depression
  3. VORTIOXETINE [Suspect]
     Active Substance: VORTIOXETINE
     Indication: Major depression
  4. LAMOTRIGINE [Suspect]
     Active Substance: LAMOTRIGINE
     Indication: Major depression
  5. LURASIDONE [Suspect]
     Active Substance: LURASIDONE
     Indication: Major depression

REACTIONS (4)
  - Encephalopathy [Unknown]
  - Serotonin syndrome [Unknown]
  - Myoclonus [Unknown]
  - Intentional overdose [Unknown]
